FAERS Safety Report 6100586-5 (Version None)
Quarter: 2009Q1

REPORT INFORMATION
  Report Type: 
  Country: None (occurrence: None)
  Receive Date: 20090227
  Receipt Date: 20090227
  Transmission Date: 20090719
  Serious: Yes (Disabling)
  Sender: FDA-Public Use
  Company Number: None

PATIENT
  Age: 44 Year
  Sex: Female
  Weight: 44.9061 kg

DRUGS (1)
  1. CIPRO [Suspect]
     Indication: CELLULITIS
     Dosage: 14 1 TABLET BID PO
     Route: 048
     Dates: start: 20090202, end: 20090209

REACTIONS (2)
  - TENDONITIS [None]
  - WEIGHT BEARING DIFFICULTY [None]
